FAERS Safety Report 5422567-7 (Version None)
Quarter: 2007Q3

REPORT INFORMATION
  Report Type: 
  Country: None (occurrence: None)
  Receive Date: 20070730
  Receipt Date: 20070530
  Transmission Date: 20080115
  Serious: Yes (Other)
  Sender: FDA-Public Use
  Company Number: 200710944BWH

PATIENT
  Age: 63 Year
  Sex: Female
  Weight: 52.1637 kg

DRUGS (3)
  1. AVELOX [Suspect]
     Indication: EAR INFECTION
     Dosage: ORAL
     Route: 048
     Dates: start: 20070317
  2. AVELOX [Suspect]
     Indication: PHARYNGITIS
     Dosage: ORAL
     Route: 048
     Dates: start: 20070317
  3. AVELOX [Suspect]
     Indication: RHINITIS
     Dosage: ORAL
     Route: 048
     Dates: start: 20070317

REACTIONS (13)
  - AGITATION [None]
  - ANXIETY [None]
  - ASTHENIA [None]
  - DRY MOUTH [None]
  - DYSPHEMIA [None]
  - ERYTHEMA [None]
  - HEART RATE IRREGULAR [None]
  - HYPERSENSITIVITY [None]
  - HYPERTENSION [None]
  - ILL-DEFINED DISORDER [None]
  - NERVOUSNESS [None]
  - RESPIRATORY RATE INCREASED [None]
  - TREMOR [None]
